FAERS Safety Report 14389143 (Version 2)
Quarter: 2020Q4

REPORT INFORMATION
  Report Type: Spontaneous
  Country: US (occurrence: US)
  Receive Date: 20180115
  Receipt Date: 20201104
  Transmission Date: 20210113
  Serious: Yes (Other)
  Sender: FDA-Public Use
  Company Number: US-SA-2017SA235019

PATIENT
  Age: 57 Year
  Sex: Female
  Weight: 87.54 kg

DRUGS (22)
  1. DOCETAXEL. [Suspect]
     Active Substance: DOCETAXEL
     Dosage: 132 MG,QCY
     Dates: start: 20140408, end: 20140408
  2. ACETYLSALICYLIC ACID [Concomitant]
     Active Substance: ASPIRIN
     Dosage: 81 MG,QD
     Route: 048
  3. NEULASTA [Concomitant]
     Active Substance: PEGFILGRASTIM
  4. DOCETAXEL. [Suspect]
     Active Substance: DOCETAXEL
     Dosage: 132 MG,QCY
     Dates: start: 20140429, end: 20140429
  5. GLYBURIDE. [Concomitant]
     Active Substance: GLYBURIDE
     Dosage: 5 MG,QD
     Route: 048
  6. DOCETAXEL. [Suspect]
     Active Substance: DOCETAXEL
     Dosage: 132 MG,QCY
     Dates: start: 20140520, end: 20140520
  7. DOCETAXEL. [Suspect]
     Active Substance: DOCETAXEL
     Dosage: 132 MG,QCY
     Dates: start: 20140610, end: 20140610
  8. CRESTOR [Concomitant]
     Active Substance: ROSUVASTATIN CALCIUM
     Dosage: 40 MG,QD
     Route: 048
  9. FUROSEMIDE. [Concomitant]
     Active Substance: FUROSEMIDE
     Dosage: 80 MG,UNK
     Route: 048
  10. CYCLOSET [Concomitant]
     Active Substance: BROMOCRIPTINE MESYLATE
     Dosage: .8 MG,QD
     Route: 048
  11. INVOKANA [Concomitant]
     Active Substance: CANAGLIFLOZIN
     Dosage: 100 MG,QD
     Route: 048
  12. PALONOSETRON HYDROCHLORIDE. [Concomitant]
     Active Substance: PALONOSETRON HYDROCHLORIDE
  13. GRANISETRON HYDROCHLORIDE. [Concomitant]
     Active Substance: GRANISETRON HYDROCHLORIDE
  14. DIOVAN [Concomitant]
     Active Substance: VALSARTAN
     Dosage: 320 MG,QD
     Route: 048
  15. CARBOPLATIN. [Concomitant]
     Active Substance: CARBOPLATIN
  16. TRASTUZUMAB. [Concomitant]
     Active Substance: TRASTUZUMAB
  17. PERTUZUMAB. [Concomitant]
     Active Substance: PERTUZUMAB
  18. POTASSIUM CHLORIDE. [Concomitant]
     Active Substance: POTASSIUM CHLORIDE
     Dosage: 10 MEQ,QD
     Route: 048
  19. DEXAMETHASONE. [Concomitant]
     Active Substance: DEXAMETHASONE
  20. DOCETAXEL. [Suspect]
     Active Substance: DOCETAXEL
     Indication: BREAST CANCER FEMALE
     Dosage: 155 MG,QCY
     Dates: start: 20140318, end: 20140318
  21. JANUVIA [Concomitant]
     Active Substance: SITAGLIPTIN PHOSPHATE
     Dosage: 100 MG,UNK
     Route: 048
  22. METOPROLOL SUCCINATE. [Concomitant]
     Active Substance: METOPROLOL SUCCINATE
     Dosage: 200 MG,QD
     Route: 048

REACTIONS (3)
  - Anxiety [Unknown]
  - Emotional distress [Unknown]
  - Alopecia [Not Recovered/Not Resolved]

NARRATIVE: CASE EVENT DATE: 201412
